FAERS Safety Report 22012432 (Version 2)
Quarter: 2023Q2

REPORT INFORMATION
  Report Type: Spontaneous
  Country: US (occurrence: US)
  Receive Date: 20230220
  Receipt Date: 20230601
  Transmission Date: 20230722
  Serious: Yes (Other)
  Sender: FDA-Public Use
  Company Number: US-ALLERGAN-2302248US

PATIENT
  Age: 56 Year
  Sex: Female

DRUGS (10)
  1. OZURDEX [Suspect]
     Active Substance: DEXAMETHASONE
     Indication: Product used for unknown indication
     Dosage: 0.7 MG, SINGLE
     Route: 031
     Dates: start: 20230112, end: 20230112
  2. SINGULAIR [Concomitant]
     Active Substance: MONTELUKAST SODIUM
  3. MELOXICAM [Concomitant]
     Active Substance: MELOXICAM
  4. CYCLOBENZAPRINE [Concomitant]
     Active Substance: CYCLOBENZAPRINE
  5. LISINOPRIL [Concomitant]
     Active Substance: LISINOPRIL
  6. BENZONATATE [Concomitant]
     Active Substance: BENZONATATE
  7. FAMOTIDINE [Concomitant]
     Active Substance: FAMOTIDINE
  8. NIFEDIPINE [Concomitant]
     Active Substance: NIFEDIPINE
  9. MELOXICAM [Concomitant]
     Active Substance: MELOXICAM
  10. ALBUTEROL [Concomitant]
     Active Substance: ALBUTEROL

REACTIONS (3)
  - Endophthalmitis [Unknown]
  - Photophobia [Unknown]
  - Injection site pain [Unknown]
